FAERS Safety Report 5661697-1 (Version None)
Quarter: 2008Q1

REPORT INFORMATION
  Report Type: 
  Country: None (occurrence: None)
  Receive Date: 20080312
  Receipt Date: 20080304
  Transmission Date: 20080703
  Serious: Yes (Death)
  Sender: FDA-Public Use
  Company Number: A0709172A

PATIENT
  Age: 85 Year
  Sex: Male

DRUGS (1)
  1. AVANDIA [Suspect]
     Dosage: 2MG UNKNOWN
     Route: 048
     Dates: start: 20060701, end: 20070713

REACTIONS (6)
  - BLADDER CANCER [None]
  - CARDIAC TAMPONADE [None]
  - HEART RATE IRREGULAR [None]
  - PERICARDIAL EFFUSION MALIGNANT [None]
  - PHARMACEUTICAL PRODUCT COMPLAINT [None]
  - PULMONARY OEDEMA [None]
